FAERS Safety Report 10180112 (Version 1)
Quarter: 2014Q2

REPORT INFORMATION
  Report Type: Spontaneous
  Country: US (occurrence: US)
  Receive Date: 20140519
  Receipt Date: 20140519
  Transmission Date: 20141212
  Serious: No
  Sender: FDA-Public Use
  Company Number: US-AMGEN INC.-USASP2013077316

PATIENT
  Age: 65 Year
  Sex: Female

DRUGS (8)
  1. PROLIA [Suspect]
     Indication: OSTEOPOROSIS POSTMENOPAUSAL
     Route: 065
  2. PLAVIX [Concomitant]
  3. TRILIPIX [Concomitant]
  4. LEXAPRO [Concomitant]
  5. XANAX [Concomitant]
  6. ABILIFY [Concomitant]
  7. AMBIEN [Concomitant]
  8. LIPITOR [Concomitant]

REACTIONS (7)
  - Oropharyngeal plaque [Unknown]
  - Stomatitis [Unknown]
  - Pain [Unknown]
  - Muscular weakness [Unknown]
  - Hyperreflexia [Unknown]
  - Photophobia [Unknown]
  - Bone pain [Unknown]
